FAERS Safety Report 7782341-3 (Version None)
Quarter: 2011Q3

REPORT INFORMATION
  Report Type: 
  Country: None (occurrence: None)
  Receive Date: 20110927
  Receipt Date: 20110920
  Transmission Date: 20111222
  Serious: Yes (Other)
  Sender: FDA-Public Use
  Company Number: US-RB-019737-10

PATIENT
  Age: 50 Year
  Sex: Female

DRUGS (2)
  1. SUBOXONE [Suspect]
     Indication: DRUG DEPENDENCE
     Dosage: 12 MG TAPERED TO 8 MG DAILY
     Route: 060
     Dates: start: 20100101
  2. KLONOPIN [Concomitant]
     Indication: ANXIETY
     Dosage: DOSING REGIMEN UNKNOWN - DAILY DOSE

REACTIONS (11)
  - DRUG DEPENDENCE [None]
  - CONDITION AGGRAVATED [None]
  - ABDOMINAL PAIN UPPER [None]
  - INSOMNIA [None]
  - CONTUSION [None]
  - STRESS [None]
  - OEDEMA PERIPHERAL [None]
  - PANIC ATTACK [None]
  - PAIN [None]
  - CONVULSION [None]
  - CATARACT [None]
